FAERS Safety Report 6646176-7 (Version None)
Quarter: 2010Q1

REPORT INFORMATION
  Report Type: 
  Country: None (occurrence: None)
  Receive Date: 20100323
  Receipt Date: 20100310
  Transmission Date: 20100710
  Serious: Yes (Death)
  Sender: FDA-Public Use
  Company Number: JP-ROCHE-659683

PATIENT
  Age: 7 Year
  Sex: Male

DRUGS (1)
  1. TAMIFLU [Suspect]
     Indication: INFLUENZA
     Dosage: FORM: PERORAL AGENT.
     Route: 048
     Dates: start: 20090920

REACTIONS (2)
  - ENCEPHALOPATHY [None]
  - SHOCK HAEMORRHAGIC [None]
